FAERS Safety Report 9496220 (Version 1)
Quarter: 2013Q3

REPORT INFORMATION
  Report Type: Spontaneous
  Country: DE (occurrence: None)
  Receive Date: 20130829
  Receipt Date: 20130829
  Transmission Date: 20140515
  Serious: Yes (Hospitalization)
  Sender: FDA-Public Use
  Company Number: GER/GER/13/0034324

PATIENT
  Age: 89 Year
  Sex: Male

DRUGS (1)
  1. SIMVASTATIN (SIMVASTATIN) [Suspect]
     Indication: CORONARY ARTERY DISEASE
     Dosage: 1D
     Route: 048
     Dates: end: 20130724

REACTIONS (3)
  - Blood creatine phosphokinase increased [None]
  - Mobility decreased [None]
  - Myoglobin urine present [None]
